FAERS Safety Report 8776264 (Version 5)
Quarter: 2013Q2

REPORT INFORMATION
  Report Type: Report from Study
  Country: US (occurrence: US)
  Receive Date: 20120910
  Receipt Date: 20130606
  Transmission Date: 20140414
  Serious: Yes (Other)
  Sender: FDA-Public Use
  Company Number: US-009507513-1209USA002614

PATIENT
  Age: 60 Year
  Sex: Male

DRUGS (8)
  1. VICTRELIS [Suspect]
     Indication: CHRONIC HEPATITIS C
     Dosage: 800 MG, TID
     Route: 048
     Dates: start: 20120809
  2. VICTRELIS [Suspect]
     Dosage: UNK UNK, TID
     Dates: start: 20120906, end: 20130417
  3. RIBAVIRIN [Suspect]
     Indication: CHRONIC HEPATITIS C
     Dosage: 1200MG(1 IN 1 D); PROCLICK INJECTOR
     Dates: start: 20120809
  4. RIBAVIRIN [Suspect]
     Dosage: 600 MG, QD
     Dates: start: 201210, end: 20130411
  5. PEGASYS [Suspect]
     Indication: CHRONIC HEPATITIS C
     Dosage: 180 MICROGRAM, QW
     Dates: start: 20120809, end: 20130411
  6. LITHIUM CARBONATE [Concomitant]
  7. NIASPAN [Concomitant]
     Dosage: 1000 ER
  8. ATENOLOL [Concomitant]

REACTIONS (19)
  - Myocardial infarction [Unknown]
  - Motion sickness [Recovering/Resolving]
  - Hair texture abnormal [Unknown]
  - Muscle atrophy [Unknown]
  - Feeling of body temperature change [Unknown]
  - Dyspnoea exertional [Unknown]
  - Headache [Unknown]
  - Pyrexia [Unknown]
  - Weight decreased [Unknown]
  - Dysgeusia [Unknown]
  - Nausea [Recovering/Resolving]
  - Nausea [Recovering/Resolving]
  - Anaemia [Unknown]
  - Haemoglobin decreased [Unknown]
  - Haemoglobin decreased [Unknown]
  - Fatigue [Not Recovered/Not Resolved]
  - Decreased appetite [Not Recovered/Not Resolved]
  - Chills [Unknown]
  - Asthenia [Unknown]
